FAERS Safety Report 8895963 (Version 2)
Quarter: 2012Q4

REPORT INFORMATION
  Report Type: Report from Study
  Country: NL (occurrence: NL)
  Receive Date: 20121108
  Receipt Date: 20121205
  Transmission Date: 20130627
  Serious: Yes (Life-Threatening, Hospitalization)
  Sender: FDA-Public Use
  Company Number: NL-ROCHE-1142963

PATIENT
  Age: 66 Year
  Sex: Male
  Weight: 80.5 kg

DRUGS (6)
  1. BEVACIZUMAB [Suspect]
     Indication: LUNG NEOPLASM MALIGNANT
     Dosage: Start date of last course:15/Oct/2012
     Route: 042
     Dates: start: 20120806
  2. BEVACIZUMAB [Suspect]
     Route: 042
     Dates: start: 20120917
  3. PACLITAXEL [Suspect]
     Indication: LUNG NEOPLASM MALIGNANT
     Dosage: Start date of last course:15/Oct/2012
     Route: 042
     Dates: start: 20120806
  4. PACLITAXEL [Suspect]
     Route: 042
     Dates: start: 20120917
  5. CARBOPLATIN [Suspect]
     Indication: LUNG NEOPLASM MALIGNANT
     Dosage: Start date of last course:15/Oct/2012
     Route: 042
     Dates: start: 20120806
  6. CARBOPLATIN [Suspect]
     Route: 042
     Dates: start: 20120917

REACTIONS (2)
  - Abdominal pain [Recovered/Resolved]
  - Aneurysm ruptured [Unknown]
